FAERS Safety Report 7741598-5 (Version None)
Quarter: 2011Q3

REPORT INFORMATION
  Report Type: 
  Country: None (occurrence: None)
  Receive Date: 20110909
  Receipt Date: 20110831
  Transmission Date: 20111222
  Serious: Yes (Other)
  Sender: FDA-Public Use
  Company Number: US-ASTRAZENECA-2011SE25673

PATIENT
  Age: 58 Year
  Sex: Male

DRUGS (2)
  1. SEROQUEL [Suspect]
     Route: 048
  2. SEROQUEL [Suspect]
     Dosage: SENT 400 MG OF SEROQUEL BUT SHOULD BE TAKING 300 MG
     Route: 048

REACTIONS (3)
  - BRAIN INJURY [None]
  - WRONG TECHNIQUE IN DRUG USAGE PROCESS [None]
  - DRUG DISPENSING ERROR [None]
